FAERS Safety Report 12282498 (Version 2)
Quarter: 2016Q2

REPORT INFORMATION
  Report Type: Spontaneous
  Country: MX (occurrence: MX)
  Receive Date: 20160419
  Receipt Date: 20160426
  Transmission Date: 20160815
  Serious: Yes (Hospitalization, Disabling)
  Sender: FDA-Public Use
  Company Number: MX-009507513-1604MEX011965

PATIENT
  Age: 49 Year
  Sex: Female
  Weight: 50 kg

DRUGS (4)
  1. OMEPRAZOLE. [Concomitant]
     Active Substance: OMEPRAZOLE
     Dosage: 1 CAPSULE EACH 24 HOURS
     Dates: start: 20160115
  2. PLANTAGO ARENARIA [Concomitant]
     Dosage: 2 TABLESPOONS DILUTED IN 1 CUP WATER IN THE MORNINGS
     Route: 048
     Dates: start: 20160415
  3. RIBAVIRIN. [Suspect]
     Active Substance: RIBAVIRIN
     Indication: HEPATITIS C
     Dosage: UNK
     Dates: end: 201604
  4. PEGTRON [Suspect]
     Active Substance: PEGINTERFERON ALFA-2B
     Indication: HEPATITIS C
     Dosage: 0.4 MICROGRAM WEEKLY
     Route: 058
     Dates: start: 20150115, end: 201604

REACTIONS (6)
  - Platelet count decreased [Unknown]
  - Headache [Unknown]
  - Pyrexia [Unknown]
  - Urinary tract infection [Unknown]
  - Colitis [Recovering/Resolving]
  - Malaise [Unknown]

NARRATIVE: CASE EVENT DATE: 20160408
